FAERS Safety Report 14877596 (Version 2)
Quarter: 2018Q2

REPORT INFORMATION
  Report Type: Spontaneous
  Country: US (occurrence: US)
  Receive Date: 20180510
  Receipt Date: 20180529
  Transmission Date: 20180711
  Serious: No
  Sender: FDA-Public Use
  Company Number: US-BIOMARINAP-US-2018-118129

PATIENT
  Age: 10 Year
  Sex: Male
  Weight: 23 kg

DRUGS (3)
  1. VIMIZIM [Suspect]
     Active Substance: ELOSULFASE ALFA
     Indication: MUCOPOLYSACCHARIDOSIS IV
     Dosage: 40 MG, QW
     Route: 042
     Dates: start: 201503
  2. DIPHENHYDRAMINE. [Concomitant]
     Active Substance: DIPHENHYDRAMINE
     Indication: PREMEDICATION
     Dosage: 12.5 MG, QW
     Route: 042
  3. ACETAMINOPHEN. [Concomitant]
     Active Substance: ACETAMINOPHEN
     Indication: PREMEDICATION
     Dosage: 240 MG, QW
     Route: 048

REACTIONS (5)
  - Malaise [Recovered/Resolved]
  - Infusion related reaction [Recovered/Resolved]
  - Pallor [Recovered/Resolved]
  - Neck pain [Recovered/Resolved]
  - Vomiting [Recovered/Resolved]

NARRATIVE: CASE EVENT DATE: 20180419
